FAERS Safety Report 4556507-X (Version None)
Quarter: 2005Q1

REPORT INFORMATION
  Report Type: 
  Country: None (occurrence: None)
  Receive Date: 20050114
  Receipt Date: 20050104
  Transmission Date: 20050727
  Serious: Yes (Hospitalization)
  Sender: FDA-Public Use
  Company Number: USA-2002-006435

PATIENT
  Age: 40 Year
  Sex: Female

DRUGS (4)
  1. YASMIN [Suspect]
     Indication: HORMONE REPLACEMENT THERAPY
     Dosage: 1 TAB, 1X/DAY, ORAL
     Route: 048
     Dates: start: 20020201, end: 20020403
  2. SYNTHROID [Concomitant]
  3. ALDACTONE [Concomitant]
  4. DETROL [Concomitant]

REACTIONS (6)
  - ADENOMATOUS POLYPOSIS COLI [None]
  - COLITIS ISCHAEMIC [None]
  - HYPERHIDROSIS [None]
  - IRON DEFICIENCY ANAEMIA [None]
  - LOWER GASTROINTESTINAL HAEMORRHAGE [None]
  - THROMBOSIS [None]
